FAERS Safety Report 10218669 (Version 1)
Quarter: 2014Q2

REPORT INFORMATION
  Report Type: Spontaneous
  Country: US (occurrence: US)
  Receive Date: 20140605
  Receipt Date: 20140605
  Transmission Date: 20141212
  Serious: Yes (Hospitalization)
  Sender: FDA-Public Use
  Company Number: US-BAYER-2014-081648

PATIENT
  Age: 23 Year
  Sex: Female
  Weight: 73.97 kg

DRUGS (5)
  1. YAZ [Suspect]
     Indication: MENSTRUAL CYCLE MANAGEMENT
  2. YASMIN [Suspect]
  3. OCELLA [Suspect]
  4. CLINDAMYCIN [Concomitant]
     Indication: TOOTH INFECTION
  5. LORTAB [Concomitant]
     Indication: TOOTHACHE

REACTIONS (1)
  - Pulmonary embolism [Recovered/Resolved]
